FAERS Safety Report 7405269-7 (Version None)
Quarter: 2011Q2

REPORT INFORMATION
  Report Type: 
  Country: None (occurrence: None)
  Receive Date: 20110404
  Receipt Date: 20110321
  Transmission Date: 20111010
  Serious: Yes (Hospitalization, Congenital Anomaly)
  Sender: FDA-Public Use
  Company Number: DSM-2011-00337

PATIENT
  Sex: Female
  Weight: 1.65 kg

DRUGS (2)
  1. AXELER (OLMESARTAN MEDOXOMIL, AMLODIPINE BESILATE) (OLEMESARTAN MEDOXO [Suspect]
     Indication: PRODUCT USED FOR UNKNOWN INDICATION
     Dosage: TRANSPLACENTAL
     Route: 064
  2. RIFINAH (ISONIAZID, RIFAMICIN) (ISONIAZID, RIFAMPICIN) [Concomitant]

REACTIONS (9)
  - MATERNAL DRUGS AFFECTING FOETUS [None]
  - CAESAREAN SECTION [None]
  - OLIGOHYDRAMNIOS [None]
  - NEONATAL ANURIA [None]
  - NEONATAL HYPOTENSION [None]
  - PERITONEAL DIALYSIS [None]
  - PREMATURE BABY [None]
  - RENAL FAILURE NEONATAL [None]
  - FOETAL GROWTH RESTRICTION [None]
